FAERS Safety Report 25948935 (Version 3)
Quarter: 2025Q4

REPORT INFORMATION
  Report Type: Report from Study
  Country: CA (occurrence: CA)
  Receive Date: 20251022
  Receipt Date: 20251218
  Transmission Date: 20260118
  Serious: Yes (Other)
  Sender: PFIZER
  Company Number: CA-PFIZER INC-202500050046

PATIENT
  Age: 70 Year
  Sex: Male
  Weight: 69 kg

DRUGS (3)
  1. IXIFI [Suspect]
     Active Substance: INFLIXIMAB-QBTX
     Indication: Neurosarcoidosis
     Dosage: 350 MG, EVERY 8 WEEKS
     Route: 042
     Dates: start: 20250820
  2. IXIFI [Suspect]
     Active Substance: INFLIXIMAB-QBTX
     Dosage: 350 MG, EVERY 8 WEEKS
     Route: 042
     Dates: start: 20251016
  3. IXIFI [Suspect]
     Active Substance: INFLIXIMAB-QBTX
     Dosage: 350 MG, EVERY 8 WEEKS
     Route: 042
     Dates: start: 20251212

REACTIONS (3)
  - Electric shock sensation [Recovered/Resolved]
  - Therapeutic response shortened [Unknown]
  - Off label use [Unknown]

NARRATIVE: CASE EVENT DATE: 20250820
